FAERS Safety Report 10042177 (Version 1)
Quarter: 2014Q1

REPORT INFORMATION
  Report Type: Spontaneous
  Country: US (occurrence: US)
  Receive Date: 20140327
  Receipt Date: 20140327
  Transmission Date: 20141002
  Serious: Yes (Death)
  Sender: FDA-Public Use
  Company Number: US-GLAXOSMITHKLINE-A1066085A

PATIENT
  Age: 46 Year
  Sex: Female

DRUGS (2)
  1. ARIXTRA [Suspect]
     Indication: LIMB INJURY
     Route: 065
  2. THYROID MEDICATION [Concomitant]
     Indication: THYROID DISORDER

REACTIONS (1)
  - Respiratory fume inhalation disorder [Fatal]
